FAERS Safety Report 16085353 (Version 2)
Quarter: 2019Q2

REPORT INFORMATION
  Report Type: Spontaneous
  Country: CA (occurrence: CA)
  Receive Date: 20190318
  Receipt Date: 20190509
  Transmission Date: 20190711
  Serious: Yes (Other)
  Sender: FDA-Public Use
  Company Number: CA-PFIZER INC-2019114980

PATIENT
  Age: 14 Year
  Sex: Female

DRUGS (4)
  1. LOMUSTINE. [Concomitant]
     Active Substance: LOMUSTINE
     Indication: MEDULLOBLASTOMA
     Dosage: CYCLIC (MAINTENANCE CHEMOTHERAPY WITH EIGHT CYCLES)
  2. CISPLATIN. [Concomitant]
     Active Substance: CISPLATIN
     Indication: MEDULLOBLASTOMA
     Dosage: (EIGHT CYCLES) (DAYS 1, 8, AND 15)
  3. VINCRISTINE SULFATE. [Suspect]
     Active Substance: VINCRISTINE SULFATE
     Indication: MEDULLOBLASTOMA
     Dosage: CYCLIC (WEEKLY)(EIGHT CYCLES DAYS 1, 8, AND 15)
  4. VINCRISTINE SULFATE. [Suspect]
     Active Substance: VINCRISTINE SULFATE
     Dosage: UNK (REDUCED BY 35%)

REACTIONS (3)
  - Paraesthesia [Recovered/Resolved]
  - Neuropathy peripheral [Recovered/Resolved]
  - Product use in unapproved indication [Unknown]
